FAERS Safety Report 25468066 (Version 1)
Quarter: 2025Q2

REPORT INFORMATION
  Report Type: Spontaneous
  Country: US (occurrence: None)
  Receive Date: 20250620
  Receipt Date: 20250620
  Transmission Date: 20250716
  Serious: Yes (Hospitalization)
  Sender: FDA-CTU
  Company Number: None

PATIENT
  Age: 37 Year
  Sex: Female

DRUGS (13)
  1. MYCOPHENOLIC ACID [Suspect]
     Active Substance: MYCOPHENOLIC ACID
     Indication: Renal transplant
     Dosage: FREQUENCY : TWICE A DAY;?
     Route: 048
     Dates: start: 20250403
  2. TACROLIMUS [Suspect]
     Active Substance: TACROLIMUS
     Indication: Renal transplant
     Dosage: OTHER QUANTITY : .5 MG;?FREQUENCY : TWICE A DAY;?
     Route: 048
     Dates: start: 20250225
  3. NYSTATIN [Concomitant]
     Active Substance: NYSTATIN
  4. POTASSIUM [Concomitant]
     Active Substance: POTASSIUM
  5. PREDNISONE [Concomitant]
     Active Substance: PREDNISONE
  6. FLUCONAZOLE [Concomitant]
     Active Substance: FLUCONAZOLE
  7. CARVEDILOL [Concomitant]
     Active Substance: CARVEDILOL
  8. CIPROFLOXACIN [Concomitant]
     Active Substance: CIPROFLOXACIN
  9. CIPROFLOXACIN [Concomitant]
     Active Substance: CIPROFLOXACIN
  10. ELIQUIS [Concomitant]
     Active Substance: APIXABAN
  11. VALGANCICLOVIR [Concomitant]
     Active Substance: VALGANCICLOVIR
  12. TIZANIDINE [Concomitant]
     Active Substance: TIZANIDINE
  13. SODIUM BICARBONATE [Concomitant]
     Active Substance: SODIUM BICARBONATE

REACTIONS (4)
  - Renal transplant [None]
  - Thrombosis [None]
  - Neutrophil count abnormal [None]
  - Infection [None]
